FAERS Safety Report 15006079 (Version 1)
Quarter: 2018Q2

REPORT INFORMATION
  Report Type: Spontaneous
  Country: US (occurrence: US)
  Receive Date: 20180525
  Receipt Date: 20180525
  Transmission Date: 20180711
  Serious: Yes (Other)
  Sender: FDA-Public Use
  Company Number: None

PATIENT
  Age: 74 Year
  Sex: Female
  Weight: 74.25 kg

DRUGS (12)
  1. LEVOFLOXACIN 500 MG. TABLET [Suspect]
     Active Substance: LEVOFLOXACIN
     Indication: BRONCHITIS
     Dosage: ?          QUANTITY:1 TABLET DAILY ORAL
     Route: 048
     Dates: start: 20180319, end: 20180330
  2. RALOXIFENE. [Concomitant]
     Active Substance: RALOXIFENE
  3. TEMAZEPAM. [Concomitant]
     Active Substance: TEMAZEPAM
  4. MONTELUKAST [Concomitant]
     Active Substance: MONTELUKAST SODIUM
  5. ALBUTEROL. [Concomitant]
     Active Substance: ALBUTEROL
  6. PULMICORT TURBUHALER [Concomitant]
     Active Substance: BUDESONIDE
  7. LEVBID [Concomitant]
     Active Substance: HYOSCYAMINE SULFATE
  8. THERAPEUTIC MULTIVITAMIN [Concomitant]
  9. ZYRTEC [Concomitant]
     Active Substance: CETIRIZINE HYDROCHLORIDE
  10. SPIRIVA [Concomitant]
     Active Substance: TIOTROPIUM BROMIDE MONOHYDRATE
  11. FLONASE [Concomitant]
     Active Substance: FLUTICASONE PROPIONATE
  12. PHILLIP^S COLON HEALTH [Concomitant]

REACTIONS (4)
  - Atelectasis [None]
  - Rib fracture [None]
  - Pleural effusion [None]
  - Musculoskeletal chest pain [None]

NARRATIVE: CASE EVENT DATE: 20180520
